FAERS Safety Report 4750923-9 (Version None)
Quarter: 2005Q3

REPORT INFORMATION
  Report Type: 
  Country: None (occurrence: None)
  Receive Date: 20050818
  Receipt Date: 20050804
  Transmission Date: 20060218
  Serious: Yes (Other)
  Sender: FDA-Public Use
  Company Number: 2005P1000156

PATIENT
  Age: 10 Year
  Sex: Female

DRUGS (1)
  1. TENEX [Suspect]
     Indication: HYPERTENSION

REACTIONS (1)
  - HAEMORRHAGE [None]
